FAERS Safety Report 4654613-2 (Version None)
Quarter: 2005Q2

REPORT INFORMATION
  Report Type: 
  Country: None (occurrence: None)
  Receive Date: 20050503
  Receipt Date: 20050503
  Transmission Date: 20051028
  Serious: Yes (Other)
  Sender: FDA-Public Use
  Company Number: None

PATIENT
  Age: 71 Year
  Sex: Female
  Weight: 117.028 kg

DRUGS (6)
  1. ADENOCARD [Suspect]
     Dosage: 21.6 MG   NOW   INTRAVENOU
     Route: 042
  2. COREG [Concomitant]
  3. FOLIC ACID [Concomitant]
  4. PLAVIX [Concomitant]
  5. ASPIRIN [Concomitant]
  6. PREVACID [Concomitant]

REACTIONS (3)
  - CARDIAC ARREST [None]
  - EXERCISE ELECTROCARDIOGRAM ABNORMAL [None]
  - INFUSION RELATED REACTION [None]
